FAERS Safety Report 24169718 (Version 5)
Quarter: 2024Q3

REPORT INFORMATION
  Report Type: Report from Study
  Country: AT (occurrence: AT)
  Receive Date: 20240803
  Receipt Date: 20240902
  Transmission Date: 20241016
  Serious: Yes (Death, Hospitalization)
  Sender: ABBVIE
  Company Number: AT-ABBVIE-4716202

PATIENT
  Age: 71 Year
  Sex: Male
  Weight: 67 kg

DRUGS (115)
  1. VENETOCLAX [Suspect]
     Active Substance: VENETOCLAX
     Indication: Acute myeloid leukaemia
     Route: 048
     Dates: start: 20230211, end: 20230211
  2. VENETOCLAX [Suspect]
     Active Substance: VENETOCLAX
     Indication: Acute myeloid leukaemia
     Route: 048
     Dates: start: 20230209, end: 20230209
  3. VENETOCLAX [Suspect]
     Active Substance: VENETOCLAX
     Indication: Acute myeloid leukaemia
     Route: 048
     Dates: start: 20230309, end: 20230405
  4. VENETOCLAX [Suspect]
     Active Substance: VENETOCLAX
     Indication: Acute myeloid leukaemia
     Route: 048
     Dates: start: 20230210, end: 20230210
  5. VENETOCLAX [Suspect]
     Active Substance: VENETOCLAX
     Indication: Acute myeloid leukaemia
     Route: 048
     Dates: start: 20230411, end: 20230508
  6. VENETOCLAX [Suspect]
     Active Substance: VENETOCLAX
     Indication: Acute myeloid leukaemia
     Dosage: STANDARD DOSING. NON HEMATOLOGIC AE / SAE
     Route: 048
     Dates: start: 20230515, end: 20230523
  7. VENETOCLAX [Suspect]
     Active Substance: VENETOCLAX
     Indication: Acute myeloid leukaemia
     Dosage: NON HEMATOLOGIC AE / SAE
     Route: 048
     Dates: start: 20230626, end: 20230723
  8. VENETOCLAX [Suspect]
     Active Substance: VENETOCLAX
     Indication: Acute myeloid leukaemia
     Dosage: FREQUENCY TEXT: STANDARD DOSE. NON HEMATOLOGIC AE / SAE
     Route: 048
     Dates: start: 20230724, end: 20230728
  9. VENETOCLAX [Suspect]
     Active Substance: VENETOCLAX
     Indication: Acute myeloid leukaemia
     Route: 048
     Dates: start: 20230212, end: 20230308
  10. VENETOCLAX [Suspect]
     Active Substance: VENETOCLAX
     Indication: Acute myeloid leukaemia
     Route: 048
     Dates: start: 20230406, end: 20230410
  11. VENETOCLAX [Suspect]
     Active Substance: VENETOCLAX
     Indication: Acute myeloid leukaemia
     Route: 048
     Dates: start: 20230509, end: 20230514
  12. VENETOCLAX [Suspect]
     Active Substance: VENETOCLAX
     Indication: Acute myeloid leukaemia
     Route: 048
     Dates: start: 20230524, end: 20230625
  13. MYCOSTATIN [Concomitant]
     Active Substance: NYSTATIN
     Indication: Oral fungal infection
     Route: 048
     Dates: start: 20230202, end: 20230220
  14. MYCOSTATIN [Concomitant]
     Active Substance: NYSTATIN
     Indication: Oral fungal infection
     Dosage: 4X2ML
     Route: 048
     Dates: start: 20240322, end: 20240323
  15. MYCOSTATIN [Concomitant]
     Active Substance: NYSTATIN
     Indication: Oral fungal infection
     Dosage: 4X2ML
     Route: 048
     Dates: start: 20240322, end: 20240323
  16. HYDROXYUREA [Concomitant]
     Active Substance: HYDROXYUREA
     Indication: Chronic myeloid leukaemia
     Route: 048
     Dates: start: 20230202, end: 20230209
  17. HYDROXYUREA [Concomitant]
     Active Substance: HYDROXYUREA
     Indication: Chronic myeloid leukaemia
     Route: 048
     Dates: start: 20240225, end: 20240225
  18. HYDROXYUREA [Concomitant]
     Active Substance: HYDROXYUREA
     Indication: Chronic myeloid leukaemia
     Dates: start: 20240315
  19. PERFALGAN [Concomitant]
     Active Substance: ACETAMINOPHEN
     Indication: Product used for unknown indication
     Dosage: TIME INTERVAL: AS NECESSARY
     Route: 042
     Dates: start: 20230207, end: 20230207
  20. ROMIPLOSTIM [Concomitant]
     Active Substance: ROMIPLOSTIM
     Indication: Thrombocytopenia
     Route: 058
     Dates: start: 20231002, end: 20240305
  21. ROMIPLOSTIM [Concomitant]
     Active Substance: ROMIPLOSTIM
     Indication: Thrombocytopenia
     Route: 058
     Dates: start: 20231002, end: 20240305
  22. CYKLOKAPRON [Concomitant]
     Active Substance: TRANEXAMIC ACID
     Indication: Haemorrhagic diathesis
     Route: 048
     Dates: start: 20240223, end: 20240308
  23. CYKLOKAPRON [Concomitant]
     Active Substance: TRANEXAMIC ACID
     Indication: Haemorrhagic diathesis
     Route: 048
     Dates: start: 20240223, end: 20240308
  24. CYKLOKAPRON [Concomitant]
     Active Substance: TRANEXAMIC ACID
     Indication: Haemorrhagic diathesis
     Route: 048
     Dates: start: 20240322, end: 20240325
  25. Excipial [Concomitant]
     Indication: Product used for unknown indication
  26. PLATELETS [Concomitant]
     Active Substance: HUMAN PLATELET, ALLOGENIC
     Indication: Product used for unknown indication
     Dates: start: 20240225, end: 20240225
  27. PLATELETS [Concomitant]
     Active Substance: HUMAN PLATELET, ALLOGENIC
     Indication: Product used for unknown indication
     Dates: start: 20240111, end: 20240208
  28. PLATELETS [Concomitant]
     Active Substance: HUMAN PLATELET, ALLOGENIC
     Indication: Product used for unknown indication
     Dates: start: 20240228, end: 20240305
  29. PLATELETS [Concomitant]
     Active Substance: HUMAN PLATELET, ALLOGENIC
     Indication: Product used for unknown indication
     Dates: start: 20230907, end: 20230911
  30. PLATELETS [Concomitant]
     Active Substance: HUMAN PLATELET, ALLOGENIC
     Indication: Product used for unknown indication
     Dates: start: 20240324, end: 20240324
  31. PLATELETS [Concomitant]
     Active Substance: HUMAN PLATELET, ALLOGENIC
     Indication: Product used for unknown indication
     Dates: start: 20230220, end: 20230220
  32. PLATELETS [Concomitant]
     Active Substance: HUMAN PLATELET, ALLOGENIC
     Indication: Product used for unknown indication
     Dates: start: 20230411, end: 20230411
  33. PLATELETS [Concomitant]
     Active Substance: HUMAN PLATELET, ALLOGENIC
     Indication: Product used for unknown indication
     Dates: start: 20230315, end: 20230315
  34. PLATELETS [Concomitant]
     Active Substance: HUMAN PLATELET, ALLOGENIC
     Indication: Product used for unknown indication
     Dates: start: 20240315, end: 20240315
  35. PLATELETS [Concomitant]
     Active Substance: HUMAN PLATELET, ALLOGENIC
     Indication: Product used for unknown indication
     Dates: start: 20230215, end: 20230215
  36. PLATELETS [Concomitant]
     Active Substance: HUMAN PLATELET, ALLOGENIC
     Indication: Product used for unknown indication
     Dates: start: 20230515, end: 20230626
  37. PLATELETS [Concomitant]
     Active Substance: HUMAN PLATELET, ALLOGENIC
     Indication: Product used for unknown indication
     Dates: start: 20230212, end: 20230212
  38. PLATELETS [Concomitant]
     Active Substance: HUMAN PLATELET, ALLOGENIC
     Indication: Product used for unknown indication
     Dates: start: 20230217, end: 20230217
  39. PLATELETS [Concomitant]
     Active Substance: HUMAN PLATELET, ALLOGENIC
     Indication: Product used for unknown indication
     Dates: start: 20231129, end: 20231228
  40. PLATELETS [Concomitant]
     Active Substance: HUMAN PLATELET, ALLOGENIC
     Indication: Product used for unknown indication
     Dates: start: 20240308, end: 20240308
  41. PLATELETS [Concomitant]
     Active Substance: HUMAN PLATELET, ALLOGENIC
     Indication: Product used for unknown indication
     Dates: start: 20230630, end: 20230808
  42. PLATELETS [Concomitant]
     Active Substance: HUMAN PLATELET, ALLOGENIC
     Indication: Product used for unknown indication
     Dates: start: 20240221, end: 20240221
  43. PLATELETS [Concomitant]
     Active Substance: HUMAN PLATELET, ALLOGENIC
     Indication: Product used for unknown indication
     Dates: start: 20230918, end: 20231113
  44. PLATELETS [Concomitant]
     Active Substance: HUMAN PLATELET, ALLOGENIC
     Indication: Product used for unknown indication
     Dates: start: 20230301, end: 20230309
  45. PLATELETS [Concomitant]
     Active Substance: HUMAN PLATELET, ALLOGENIC
     Indication: Product used for unknown indication
     Dates: start: 20230317, end: 20230317
  46. PLATELETS [Concomitant]
     Active Substance: HUMAN PLATELET, ALLOGENIC
     Indication: Product used for unknown indication
     Dates: start: 20230821, end: 20230905
  47. PLATELETS [Concomitant]
     Active Substance: HUMAN PLATELET, ALLOGENIC
     Indication: Product used for unknown indication
     Dates: start: 20230811, end: 20230811
  48. PLATELETS [Concomitant]
     Active Substance: HUMAN PLATELET, ALLOGENIC
     Indication: Product used for unknown indication
     Dates: start: 20230414, end: 20230503
  49. PLATELETS [Concomitant]
     Active Substance: HUMAN PLATELET, ALLOGENIC
     Indication: Product used for unknown indication
     Dates: start: 20230628, end: 20230628
  50. PLATELETS [Concomitant]
     Active Substance: HUMAN PLATELET, ALLOGENIC
     Indication: Product used for unknown indication
     Dates: start: 20240223, end: 20240223
  51. PLATELETS [Concomitant]
     Active Substance: HUMAN PLATELET, ALLOGENIC
     Indication: Product used for unknown indication
     Dosage: CONCENTRATE
     Dates: start: 20230209, end: 20230209
  52. PLATELETS [Concomitant]
     Active Substance: HUMAN PLATELET, ALLOGENIC
     Indication: Product used for unknown indication
     Dates: start: 20230320, end: 20230405
  53. DIPHENHYDRAMINE HYDROCHLORIDE [Concomitant]
     Active Substance: DIPHENHYDRAMINE HYDROCHLORIDE
     Indication: Antiallergic therapy
     Dosage: ONE AMPOULE
     Route: 042
     Dates: start: 20240324, end: 20240325
  54. BENZYL PENICILLIN [Concomitant]
     Indication: Product used for unknown indication
     Route: 042
     Dates: start: 20230208, end: 20230222
  55. Gengigel [Concomitant]
     Indication: Product used for unknown indication
     Route: 048
     Dates: start: 20230202, end: 20230220
  56. Gengigel [Concomitant]
     Indication: Product used for unknown indication
     Route: 048
     Dates: start: 20230202, end: 20230220
  57. COLDISTOP [Concomitant]
     Indication: Product used for unknown indication
     Route: 062
     Dates: start: 20230202, end: 20230220
  58. METHYLPREDNISOLONE [Concomitant]
     Active Substance: METHYLPREDNISOLONE
     Indication: Product used for unknown indication
     Route: 048
     Dates: start: 20230108, end: 20230222
  59. HALCION [Concomitant]
     Active Substance: TRIAZOLAM
     Indication: Product used for unknown indication
     Dosage: TIME INTERVAL: AS NECESSARY
     Route: 048
     Dates: start: 20230202, end: 20230220
  60. ENALAPRIL [Concomitant]
     Active Substance: ENALAPRIL
     Indication: Product used for unknown indication
     Route: 048
  61. ENALAPRIL [Concomitant]
     Active Substance: ENALAPRIL
     Indication: Product used for unknown indication
  62. ACETAMINOPHEN [Concomitant]
     Active Substance: ACETAMINOPHEN
     Indication: Pain
     Route: 048
     Dates: start: 20230208, end: 20230222
  63. ACETAMINOPHEN [Concomitant]
     Active Substance: ACETAMINOPHEN
     Indication: Pain
     Route: 048
  64. NORVASC [Concomitant]
     Active Substance: AMLODIPINE BESYLATE
     Indication: Hypertension
     Route: 048
     Dates: start: 20240322, end: 20240324
  65. NORVASC [Concomitant]
     Active Substance: AMLODIPINE BESYLATE
     Indication: Hypertension
     Dosage: 2.5MG
     Route: 048
  66. CHLORHEXIDINE GLUCONATE [Concomitant]
     Active Substance: CHLORHEXIDINE GLUCONATE
     Indication: Product used for unknown indication
     Route: 048
     Dates: start: 20230202, end: 20230220
  67. CHLORHEXIDINE GLUCONATE [Concomitant]
     Active Substance: CHLORHEXIDINE GLUCONATE
     Indication: Product used for unknown indication
     Route: 048
     Dates: start: 20230202, end: 20230220
  68. OCTENIDOL [Concomitant]
     Indication: Product used for unknown indication
     Route: 048
     Dates: start: 20230202, end: 20230220
  69. OCTENIDOL [Concomitant]
     Indication: Product used for unknown indication
     Route: 048
     Dates: start: 20230202, end: 20230220
  70. CEFPIROME SULFATE [Concomitant]
     Active Substance: CEFPIROME SULFATE
     Indication: Product used for unknown indication
     Route: 048
     Dates: start: 20230207, end: 20230216
  71. AZACITIDINE [Concomitant]
     Active Substance: AZACITIDINE
     Indication: Product used for unknown indication
     Dates: start: 20230209, end: 20230210
  72. AZACITIDINE [Concomitant]
     Active Substance: AZACITIDINE
     Indication: Product used for unknown indication
     Dates: start: 20230313, end: 20230317
  73. AZACITIDINE [Concomitant]
     Active Substance: AZACITIDINE
     Indication: Product used for unknown indication
     Dates: start: 20230213, end: 20230217
  74. AZACITIDINE [Concomitant]
     Active Substance: AZACITIDINE
     Indication: Product used for unknown indication
     Dates: start: 20230309, end: 20230310
  75. AZACITIDINE [Concomitant]
     Active Substance: AZACITIDINE
     Indication: Product used for unknown indication
     Dates: start: 20230411, end: 20230414
  76. AZACITIDINE [Concomitant]
     Active Substance: AZACITIDINE
     Indication: Product used for unknown indication
     Dates: start: 20230515, end: 20230518
  77. AZACITIDINE [Concomitant]
     Active Substance: AZACITIDINE
     Indication: Product used for unknown indication
     Dates: start: 20230626, end: 20230630
  78. AZACITIDINE [Concomitant]
     Active Substance: AZACITIDINE
     Indication: Product used for unknown indication
     Dosage: FREQUENCY TEXT: STANDARD DOSE
     Dates: start: 20230724, end: 20230728
  79. DEXIBUPROFEN [Concomitant]
     Active Substance: DEXIBUPROFEN
     Indication: Product used for unknown indication
     Dosage: TIME INTERVAL: AS NECESSARY
     Route: 048
     Dates: start: 20230206
  80. DEXIBUPROFEN [Concomitant]
     Active Substance: DEXIBUPROFEN
     Indication: Product used for unknown indication
  81. ERYTHROPOIETIN [Concomitant]
     Active Substance: ERYTHROPOIETIN
     Indication: Product used for unknown indication
     Route: 058
     Dates: start: 20230313
  82. AMOXICILLIN\CLAVULANATE POTASSIUM [Concomitant]
     Active Substance: AMOXICILLIN\CLAVULANATE POTASSIUM
     Indication: Infection
     Dosage: 875/125 MG
     Route: 048
     Dates: start: 20240222, end: 20240229
  83. AMOXICILLIN\CLAVULANATE POTASSIUM [Concomitant]
     Active Substance: AMOXICILLIN\CLAVULANATE POTASSIUM
     Indication: Infection
     Dosage: 875/125 MG
     Route: 048
     Dates: start: 20240221, end: 20240229
  84. GLYCOSAMINOGLYCANS [Concomitant]
     Active Substance: GLYCOSAMINOGLYCANS
     Indication: Product used for unknown indication
     Route: 003
     Dates: start: 20230208, end: 20230220
  85. ACETAMINOPHEN [Concomitant]
     Active Substance: ACETAMINOPHEN
     Indication: Product used for unknown indication
     Dosage: TIME INTERVAL: 0.33333333 DAYS
     Route: 048
     Dates: start: 20230203
  86. PANTOPRAZOLE SODIUM [Concomitant]
     Active Substance: PANTOPRAZOLE SODIUM
     Indication: Gastrointestinal disorder prophylaxis
     Route: 048
     Dates: start: 20230202
  87. PANTOPRAZOLE SODIUM [Concomitant]
     Active Substance: PANTOPRAZOLE SODIUM
     Indication: Gastrointestinal disorder prophylaxis
     Route: 048
     Dates: start: 20240322, end: 20240325
  88. LOKELMA [Concomitant]
     Active Substance: SODIUM ZIRCONIUM CYCLOSILICATE
     Indication: Hyperkalaemia
     Route: 048
     Dates: start: 20240323, end: 20240324
  89. Erythrocyte concentrated [Concomitant]
     Indication: Product used for unknown indication
     Dates: start: 20240221, end: 20240221
  90. Erythrocyte concentrated [Concomitant]
     Indication: Product used for unknown indication
     Dates: start: 20230210, end: 20230210
  91. Erythrocyte concentrated [Concomitant]
     Indication: Product used for unknown indication
     Dates: start: 20230918, end: 20230918
  92. Erythrocyte concentrated [Concomitant]
     Indication: Product used for unknown indication
     Dates: start: 20230219, end: 20230219
  93. Erythrocyte concentrated [Concomitant]
     Indication: Product used for unknown indication
     Dates: start: 20240323, end: 20240324
  94. Erythrocyte concentrated [Concomitant]
     Indication: Product used for unknown indication
     Dates: start: 20240225, end: 20240225
  95. SODIUM BICARBONATE [Concomitant]
     Active Substance: SODIUM BICARBONATE
     Indication: Renal failure
     Route: 048
     Dates: start: 20240324, end: 20240325
  96. COMBIVENT [Concomitant]
     Active Substance: ALBUTEROL SULFATE\IPRATROPIUM BROMIDE
     Indication: Bronchospasm
     Route: 055
     Dates: end: 20240324
  97. COMBIVENT [Concomitant]
     Active Substance: ALBUTEROL SULFATE\IPRATROPIUM BROMIDE
     Indication: Bronchospasm
     Route: 055
     Dates: end: 20240324
  98. DEXAMETHASONE [Concomitant]
     Active Substance: DEXAMETHASONE
     Indication: Dyspnoea
     Route: 048
     Dates: start: 20240208, end: 20240214
  99. DEXAMETHASONE [Concomitant]
     Active Substance: DEXAMETHASONE
     Indication: Dyspnoea
     Route: 042
     Dates: start: 20240322, end: 20240324
  100. SEVELAMER [Concomitant]
     Active Substance: SEVELAMER
     Indication: Renal failure
     Route: 048
     Dates: start: 20240323, end: 20240324
  101. NOVORAPID [Concomitant]
     Active Substance: INSULIN ASPART
     Indication: Hypokalaemia
     Route: 042
     Dates: start: 20240324, end: 20240324
  102. TAZOBACTAM [Concomitant]
     Active Substance: TAZOBACTAM
     Indication: Infection
     Route: 042
     Dates: start: 20240322, end: 20240322
  103. TAZOBACTAM [Concomitant]
     Active Substance: TAZOBACTAM
     Indication: Infection
     Route: 040
     Dates: start: 20240323, end: 20240324
  104. OXYGEN [Concomitant]
     Active Substance: OXYGEN
     Indication: Dyspnoea
     Dates: start: 20240322, end: 20240324
  105. Novalgin [Concomitant]
     Indication: Pain
     Route: 048
     Dates: start: 20240322, end: 20240325
  106. Novalgin [Concomitant]
     Indication: Pain
     Route: 048
     Dates: start: 20240322, end: 20240325
  107. MORPHINE [Concomitant]
     Active Substance: MORPHINE
     Indication: Dyspnoea
     Route: 042
     Dates: start: 20240324, end: 20240325
  108. ELOMEL [Concomitant]
     Indication: Electrolyte substitution therapy
     Route: 042
     Dates: start: 20240323, end: 20240324
  109. ELOMEL [Concomitant]
     Indication: Electrolyte substitution therapy
     Route: 042
     Dates: start: 20240323, end: 20240324
  110. DIFLUCAN [Concomitant]
     Active Substance: FLUCONAZOLE
     Indication: Fungal infection
     Route: 042
     Dates: start: 20240322, end: 20240324
  111. LEVOFLOXACIN [Concomitant]
     Active Substance: LEVOFLOXACIN
     Indication: Infection
     Route: 042
     Dates: start: 20240322, end: 20240322
  112. LEVOFLOXACIN [Concomitant]
     Active Substance: LEVOFLOXACIN
     Indication: Infection
     Route: 042
     Dates: start: 20240323, end: 20240324
  113. ERYTHROPOIETIN [Concomitant]
     Active Substance: ERYTHROPOIETIN
     Indication: Anaemia
     Route: 058
     Dates: start: 20230313, end: 2024
  114. Xospata (Gilteritinib fumarate) [Concomitant]
     Indication: Thrombocytopenia
  115. LIPOLOTION [Concomitant]
     Indication: Product used for unknown indication

REACTIONS (26)
  - Cardiac arrest [Fatal]
  - Petechiae [Recovered/Resolved]
  - Petechiae [Recovered/Resolved]
  - Thrombocytopenia [Recovered/Resolved]
  - Epistaxis [Recovered/Resolved]
  - Epistaxis [Not Recovered/Not Resolved]
  - Petechiae [Recovered/Resolved]
  - Petechiae [Not Recovered/Not Resolved]
  - Chills [Unknown]
  - Thrombocytopenia [Recovered/Resolved]
  - Pallor [Unknown]
  - Laboratory test abnormal [Unknown]
  - Tumour lysis syndrome [Fatal]
  - General physical health deterioration [Fatal]
  - Melaena [Unknown]
  - Pyrexia [Unknown]
  - Infection [Fatal]
  - Acute kidney injury [Fatal]
  - Skin haemorrhage [Unknown]
  - Oral blood blister [Unknown]
  - Thrombocytopenia [Recovered/Resolved]
  - Dyspnoea [Unknown]
  - Acute myeloid leukaemia [Fatal]
  - Neoplasm progression [Fatal]
  - Respiratory failure [Fatal]
  - Multiple organ dysfunction syndrome [Fatal]

NARRATIVE: CASE EVENT DATE: 20230309
